FAERS Safety Report 9422636 (Version 2)
Quarter: 2013Q3

REPORT INFORMATION
  Report Type: Spontaneous
  Country: FR (occurrence: FR)
  Receive Date: 20130726
  Receipt Date: 20130930
  Transmission Date: 20140515
  Serious: Yes (Hospitalization, Other)
  Sender: FDA-Public Use
  Company Number: FR-ELI_LILLY_AND_COMPANY-FR201307004543

PATIENT
  Age: 57 Year
  Sex: Female

DRUGS (4)
  1. CYMBALTA [Suspect]
     Indication: DEPRESSION
     Dosage: 120 MG, QD
     Route: 048
     Dates: end: 20130215
  2. LEXOMIL [Concomitant]
  3. THERALENE [Concomitant]
     Dosage: 5 MG, QD
     Route: 048
  4. PARIET [Concomitant]
     Dosage: 10 MG, QD
     Route: 048

REACTIONS (1)
  - Hepatocellular injury [Recovered/Resolved]
